FAERS Safety Report 19224120 (Version 1)
Quarter: 2021Q2

REPORT INFORMATION
  Report Type: Spontaneous
  Country: US (occurrence: US)
  Receive Date: 20210505
  Receipt Date: 20210505
  Transmission Date: 20210717
  Serious: No
  Sender: FDA-Public Use
  Company Number: US-ROCHE-2628909

PATIENT
  Sex: Male
  Weight: 93.07 kg

DRUGS (2)
  1. ESBRIET [Suspect]
     Active Substance: PIRFENIDONE
     Dosage: 3 TABLETS 3 TIMES A DAY ;ONGOING: NO
     Route: 048
  2. ESBRIET [Suspect]
     Active Substance: PIRFENIDONE
     Indication: PULMONARY FIBROSIS
     Dosage: 2 TABLET 3 TIMES A DAY ;ONGOING: NO
     Route: 048
     Dates: start: 20200301

REACTIONS (6)
  - Fatigue [Recovering/Resolving]
  - Blister [Recovering/Resolving]
  - Arthralgia [Recovering/Resolving]
  - Dyspnoea [Recovering/Resolving]
  - Rash [Recovering/Resolving]
  - Insomnia [Recovering/Resolving]
